FAERS Safety Report 11065029 (Version 2)
Quarter: 2015Q2

REPORT INFORMATION
  Report Type: Spontaneous
  Country: US (occurrence: US)
  Receive Date: 20150424
  Receipt Date: 20150525
  Transmission Date: 20150821
  Serious: No
  Sender: FDA-Public Use
  Company Number: US-JNJFOC-20150311032

PATIENT
  Age: 59 Year
  Sex: Female

DRUGS (12)
  1. TOPAMAX [Suspect]
     Active Substance: TOPIRAMATE
     Indication: DRUG THERAPY
     Route: 048
  2. TOPAMAX [Suspect]
     Active Substance: TOPIRAMATE
     Indication: BULIMIA NERVOSA
     Route: 048
  3. TOPAMAX [Suspect]
     Active Substance: TOPIRAMATE
     Indication: BULIMIA NERVOSA
     Route: 048
  4. TOPAMAX [Suspect]
     Active Substance: TOPIRAMATE
     Indication: DRUG THERAPY
     Dosage: 100MGX2
     Route: 048
  5. TOPAMAX [Suspect]
     Active Substance: TOPIRAMATE
     Indication: BULIMIA NERVOSA
     Dosage: 100MGX2
     Route: 048
  6. TOPAMAX [Suspect]
     Active Substance: TOPIRAMATE
     Indication: BULIMIA NERVOSA
     Route: 048
  7. TOPAMAX [Suspect]
     Active Substance: TOPIRAMATE
     Indication: DRUG THERAPY
     Route: 048
     Dates: end: 2015
  8. TOPAMAX [Suspect]
     Active Substance: TOPIRAMATE
     Indication: DRUG THERAPY
     Route: 048
  9. TOPAMAX [Suspect]
     Active Substance: TOPIRAMATE
     Indication: DRUG THERAPY
     Route: 048
  10. TOPAMAX [Suspect]
     Active Substance: TOPIRAMATE
     Indication: BULIMIA NERVOSA
     Route: 048
     Dates: end: 2015
  11. TOPAMAX [Suspect]
     Active Substance: TOPIRAMATE
     Indication: DRUG THERAPY
     Route: 048
  12. TOPAMAX [Suspect]
     Active Substance: TOPIRAMATE
     Indication: BULIMIA NERVOSA
     Route: 048

REACTIONS (8)
  - Product use issue [Unknown]
  - Cognitive disorder [Not Recovered/Not Resolved]
  - Therapeutic response unexpected [Unknown]
  - Eye disorder [Unknown]
  - Adverse event [Unknown]
  - Thinking abnormal [Unknown]
  - Amnesia [Not Recovered/Not Resolved]
  - Aphasia [Not Recovered/Not Resolved]
